FAERS Safety Report 19934786 (Version 9)
Quarter: 2023Q1

REPORT INFORMATION
  Report Type: Report from Study
  Country: CA (occurrence: CA)
  Receive Date: 20211008
  Receipt Date: 20230316
  Transmission Date: 20230418
  Serious: Yes (Other)
  Sender: FDA-Public Use
  Company Number: CA-TAKEDA-2020TUS031558

PATIENT
  Age: 60 Year
  Sex: Female

DRUGS (29)
  1. IXAZOMIB [Suspect]
     Active Substance: IXAZOMIB
     Indication: Plasma cell myeloma
     Dosage: 4 MILLIGRAM
     Route: 048
     Dates: start: 20200428, end: 20200717
  2. IXAZOMIB [Suspect]
     Active Substance: IXAZOMIB
     Dosage: 2.3 MILLIGRAM
     Route: 048
     Dates: end: 20221114
  3. IXAZOMIB [Suspect]
     Active Substance: IXAZOMIB
     Dosage: 2.3 MILLIGRAM
     Route: 048
     Dates: start: 20230105
  4. IXAZOMIB [Suspect]
     Active Substance: IXAZOMIB
     Dosage: 2.3 MILLIGRAM
     Route: 048
     Dates: start: 20230108
  5. DEXAMETHASONE [Suspect]
     Active Substance: DEXAMETHASONE
     Indication: Plasma cell myeloma
     Dosage: 40 MILLIGRAM, QD
     Route: 065
     Dates: start: 20200428
  6. ONDANSETRON [Suspect]
     Active Substance: ONDANSETRON
     Indication: Plasma cell myeloma
     Dosage: 8 MILLIGRAM
     Route: 048
  7. CYCLOPHOSPHAMIDE [Suspect]
     Active Substance: CYCLOPHOSPHAMIDE
     Indication: Plasma cell myeloma
     Dosage: 550 MILLIGRAM, 1/WEEK
     Route: 065
     Dates: start: 20200428
  8. REVLIMID [Suspect]
     Active Substance: LENALIDOMIDE
     Indication: Plasma cell myeloma
     Dosage: 10 MILLIGRAM, QD
     Route: 048
     Dates: start: 20210423
  9. ACYCLOVIR [Concomitant]
     Active Substance: ACYCLOVIR
     Indication: Product used for unknown indication
     Dosage: 400 MILLIGRAM, BID
     Route: 048
  10. DULOXETINE [Concomitant]
     Active Substance: DULOXETINE
     Indication: Product used for unknown indication
     Dosage: 90 MILLIGRAM, QD
     Route: 048
  11. PREGABALIN [Concomitant]
     Active Substance: PREGABALIN
     Indication: Product used for unknown indication
     Dosage: 30 MILLIGRAM, QD
     Route: 048
  12. PREGABALIN [Concomitant]
     Active Substance: PREGABALIN
     Dosage: 50 MILLIGRAM, BID
     Route: 048
  13. ACETAMINOPHEN\TRAMADOL [Concomitant]
     Active Substance: ACETAMINOPHEN\TRAMADOL
     Indication: Product used for unknown indication
     Dosage: UNK
     Route: 048
  14. LEVOTHYROXINE SODIUM [Concomitant]
     Active Substance: LEVOTHYROXINE SODIUM
     Indication: Product used for unknown indication
     Dosage: 75 MICROGRAM, QD
     Route: 048
  15. VITAMIN B12 [Concomitant]
     Active Substance: CYANOCOBALAMIN
     Indication: Product used for unknown indication
     Dosage: 1000 MICROGRAM, QD
     Route: 048
  16. LORAZEPAM [Concomitant]
     Active Substance: LORAZEPAM
     Indication: Product used for unknown indication
     Dosage: UNK
     Route: 048
  17. ASPIRIN [Concomitant]
     Active Substance: ASPIRIN
     Indication: Product used for unknown indication
     Dosage: 81 MILLIGRAM, QD
     Route: 048
  18. CLOBETASOL [Concomitant]
     Active Substance: CLOBETASOL
     Indication: Product used for unknown indication
     Dosage: UNK
     Route: 061
  19. METRONIDAZOLE [Concomitant]
     Active Substance: METRONIDAZOLE
     Indication: Product used for unknown indication
     Dosage: UNK
     Route: 061
  20. CALCIUM\VITAMIN D [Concomitant]
     Active Substance: CALCIUM\VITAMIN D
     Indication: Product used for unknown indication
     Dosage: UNK UNK, QD
     Route: 048
  21. ZOLEDRONIC ACID [Concomitant]
     Active Substance: ZOLEDRONIC ACID
     Indication: Product used for unknown indication
     Dosage: 4 MILLIGRAM
     Route: 042
  22. MOMETASONE [Concomitant]
     Active Substance: MOMETASONE
     Indication: Product used for unknown indication
     Dosage: UNK
     Route: 061
  23. Covishield [Concomitant]
     Indication: Product used for unknown indication
     Dosage: UNK
     Route: 030
     Dates: start: 20210313, end: 20210313
  24. Covishield [Concomitant]
     Dosage: UNK
     Route: 030
     Dates: start: 20210413
  25. NORTRIPTYLINE [Concomitant]
     Active Substance: NORTRIPTYLINE
     Indication: Product used for unknown indication
     Dosage: 30 MILLIGRAM, QD
     Route: 048
  26. ACETAMINOPHEN [Concomitant]
     Active Substance: ACETAMINOPHEN
     Indication: Product used for unknown indication
     Dosage: UNK
     Route: 048
  27. SYNTHROID [Concomitant]
     Active Substance: LEVOTHYROXINE SODIUM
     Dosage: 0.1 MICROGRAM
     Route: 065
  28. CANNABIDIOL [Concomitant]
     Active Substance: CANNABIDIOL
     Dosage: 20 MILLIGRAM
     Route: 065
  29. CALCIUM\MAGNESIUM [Concomitant]
     Active Substance: CALCIUM\MAGNESIUM
     Dosage: UNK
     Route: 065

REACTIONS (22)
  - Neuropathy peripheral [Not Recovered/Not Resolved]
  - Constipation [Not Recovered/Not Resolved]
  - Diarrhoea [Not Recovered/Not Resolved]
  - Rash papular [Not Recovered/Not Resolved]
  - Dry skin [Not Recovered/Not Resolved]
  - Skin ulcer [Not Recovered/Not Resolved]
  - COVID-19 [Not Recovered/Not Resolved]
  - Gastrointestinal disorder [Not Recovered/Not Resolved]
  - Skin disorder [Not Recovered/Not Resolved]
  - Nausea [Recovered/Resolved]
  - Abdominal distension [Not Recovered/Not Resolved]
  - Back pain [Not Recovered/Not Resolved]
  - Respiratory tract infection viral [Recovering/Resolving]
  - Nasopharyngitis [Not Recovered/Not Resolved]
  - Vitamin B12 decreased [Unknown]
  - Thyroid disorder [Unknown]
  - Muscle spasms [Unknown]
  - Fatigue [Unknown]
  - Drug ineffective [Unknown]
  - Full blood count decreased [Unknown]
  - Product dose omission issue [Unknown]
  - Off label use [Not Recovered/Not Resolved]

NARRATIVE: CASE EVENT DATE: 20200428
